FAERS Safety Report 6814113-8 (Version None)
Quarter: 2010Q3

REPORT INFORMATION
  Report Type: 
  Country: None (occurrence: None)
  Receive Date: 20100702
  Receipt Date: 20091123
  Transmission Date: 20110219
  Serious: No
  Sender: FDA-Public Use
  Company Number: A0823503A

PATIENT
  Age: 67 Year
  Sex: Female

DRUGS (13)
  1. ADVAIR DISKUS 100/50 [Suspect]
     Indication: ASTHMA
     Dosage: 2PUFF TWICE PER DAY
     Route: 055
     Dates: start: 20091109, end: 20091111
  2. QVAR 40 [Concomitant]
  3. XOPENEX [Concomitant]
  4. SYNTHROID [Concomitant]
  5. PROVENTIL [Concomitant]
  6. PRILOSEC [Concomitant]
  7. XOLAIR [Concomitant]
  8. UNIPHYL [Concomitant]
  9. MEDROL [Concomitant]
  10. K-DUR [Concomitant]
  11. ENALAPRIL MALEATE [Concomitant]
  12. GAMMAGARD [Concomitant]
  13. BONIVA [Concomitant]

REACTIONS (2)
  - DIARRHOEA [None]
  - PALPITATIONS [None]
